FAERS Safety Report 23798703 (Version 1)
Quarter: 2024Q2

REPORT INFORMATION
  Report Type: Spontaneous
  Country: US (occurrence: None)
  Receive Date: 20240427
  Receipt Date: 20240427
  Transmission Date: 20240716
  Serious: No
  Sender: FDA-Public Use
  Company Number: None

PATIENT
  Age: 75 Year
  Sex: Male
  Weight: 77.4 kg

DRUGS (3)
  1. CORICIDIN HBP COUGH AND COLD [Suspect]
     Active Substance: CHLORPHENIRAMINE MALEATE\DEXTROMETHORPHAN HYDROBROMIDE
     Indication: Rhinorrhoea
     Dosage: OTHER QUANTITY : 1 TABLET(S);?OTHER FREQUENCY : ONCE;?
     Route: 048
     Dates: start: 20240330
  2. CENTRIUM MEN 50+ [Concomitant]
  3. BERBERINE [Concomitant]
     Active Substance: BERBERINE

REACTIONS (5)
  - Tinnitus [None]
  - Ear discomfort [None]
  - Ear disorder [None]
  - Deafness unilateral [None]
  - Deafness transitory [None]

NARRATIVE: CASE EVENT DATE: 20240330
